FAERS Safety Report 21648099 (Version 1)
Quarter: 2022Q4

REPORT INFORMATION
  Report Type: Spontaneous
  Country: CZ (occurrence: CZ)
  Receive Date: 20221128
  Receipt Date: 20221128
  Transmission Date: 20230112
  Serious: Yes (Life-Threatening, Hospitalization, Other)
  Sender: FDA-Public Use
  Company Number: None

PATIENT
  Age: 58 Year
  Sex: Female
  Weight: 80 kg

DRUGS (12)
  1. OPDIVO [Suspect]
     Active Substance: NIVOLUMAB
     Indication: Renal cancer
     Dosage: A TOTAL OF 11 DOSES (240MG EACH) OF NIVOLUMAB WERE ADMINISTERED. BETWEEN MARCH 11TH, 2022 AND JUNE 1
     Route: 042
     Dates: start: 20220311, end: 20221031
  2. IPILIMUMAB [Suspect]
     Active Substance: IPILIMUMAB
     Indication: Renal cancer
     Dosage: ADMINISTERED WITH NIVOLUMAB (3MG/KG). THE PRODUCT WAS ADMINISTERED A TOTAL OF 4 TIMES.
     Route: 042
     Dates: start: 20220311, end: 20220610
  3. TISERCIN [LEVOMEPROMAZINE MALEATE] [Concomitant]
     Indication: Schizophrenia
     Dosage: ONE TABLET BEFORE BED, CHRONICALLY
     Route: 048
  4. FENTANYL-RATIOPHARM [Concomitant]
     Indication: Pain
     Dosage: 25 MICROGRAMS PER HOUR CHRONICALLY
     Route: 003
  5. OMEPRAZOLE [Concomitant]
     Active Substance: OMEPRAZOLE
     Indication: Product used for unknown indication
     Dosage: 1-0-0 CHRONICALLY; CHANGED TO PANTOPRAZOLE
     Route: 048
  6. FORMOTEROL FUMARATE [Concomitant]
     Active Substance: FORMOTEROL FUMARATE
     Indication: Chronic obstructive pulmonary disease
     Dosage: 1-0-1 INHALES
     Route: 055
  7. DICLOFENAC SODIUM [Concomitant]
     Active Substance: DICLOFENAC SODIUM
     Indication: Pain
     Dosage: 1-0-0; STOPPED DUE TO THE RISK ASSOCIATED WITH THE ACUTE HEPATITIS
     Route: 048
  8. METFORMIN [Concomitant]
     Active Substance: METFORMIN HYDROCHLORIDE
     Indication: Type 2 diabetes mellitus
     Dosage: 1-0-0, CHRONIC MEDICATION. THE PRODUCT WAS STOPPED ONLY FOR THE DURATION OF THE HOSPITAL STAY DUE TO
     Route: 048
  9. EUPHYLLIN CR N [Concomitant]
     Indication: Chronic obstructive pulmonary disease
     Dosage: 1-0-1
     Route: 048
  10. ASPIRIN [Concomitant]
     Active Substance: ASPIRIN
     Indication: Cerebrovascular accident
     Dosage: 1-0-0 DAILY, CHRONICALLY
     Route: 048
  11. HALOPERIDOL DECANOAT [Concomitant]
     Indication: Schizophrenia
     Dosage: DEPOT MEDICATION ADMINISTERED EVERY 4 WEEKS. THE PATIENT DID NOT RECEIVE THE LAST 2 DOSES DUE TO NON
     Route: 030
  12. CALCIUM\CHOLECALCIFEROL [Concomitant]
     Active Substance: CALCIUM\CHOLECALCIFEROL
     Indication: Metastases to bone
     Dosage: 1-0-0
     Route: 048

REACTIONS (1)
  - Hepatitis B [Recovering/Resolving]

NARRATIVE: CASE EVENT DATE: 20221108
